FAERS Safety Report 12700232 (Version 1)
Quarter: 2016Q3

REPORT INFORMATION
  Report Type: Not Available
  Country: None (occurrence: US)
  Receive Date: 20160830
  Receipt Date: 20160830
  Transmission Date: 20161109
  Serious: No
  Sender: FDA-Public Use
  Company Number: US-AKORN-32043

PATIENT
  Age: 86 Year
  Sex: Male
  Weight: 185 kg

DRUGS (1)
  1. DORZOLAMIDE HCI-TIMOLOL MALEATE SOLUTION [Suspect]
     Active Substance: DORZOLAMIDE HYDROCHLORIDE\TIMOLOL MALEATE

REACTIONS (3)
  - Throat irritation [None]
  - Vocal cord disorder [None]
  - Productive cough [None]
